FAERS Safety Report 15074255 (Version 1)
Quarter: 2018Q2

REPORT INFORMATION
  Report Type: Spontaneous
  Country: US (occurrence: US)
  Receive Date: 20180627
  Receipt Date: 20180627
  Transmission Date: 20180711
  Serious: Yes (Other)
  Sender: FDA-Public Use
  Company Number: US-ROCHE-2143679

PATIENT
  Age: 26 Year
  Sex: Male

DRUGS (1)
  1. OCREVUS [Suspect]
     Active Substance: OCRELIZUMAB
     Indication: MULTIPLE SCLEROSIS
     Dosage: 2 X 300MG?ON 30/MAR/2018, SHE RECEIVED OCRELIZUMAB INFUSION.
     Route: 065
     Dates: start: 20180215

REACTIONS (3)
  - Suicidal ideation [Unknown]
  - Hallucination, auditory [Unknown]
  - Depressive symptom [Unknown]

NARRATIVE: CASE EVENT DATE: 201803
